FAERS Safety Report 5853293-8 (Version None)
Quarter: 2008Q3

REPORT INFORMATION
  Report Type: 
  Country: None (occurrence: None)
  Receive Date: 20080821
  Receipt Date: 20080818
  Transmission Date: 20090109
  Serious: Yes (Other)
  Sender: FDA-Public Use
  Company Number: US-GENENTECH-266281

PATIENT
  Sex: Male
  Weight: 86.168 kg

DRUGS (1)
  1. RAPTIVA [Suspect]
     Indication: PSORIASIS
     Dosage: 90 MG, 1/WEEK
     Route: 058
     Dates: start: 20080313, end: 20080601

REACTIONS (1)
  - CUTANEOUS LUPUS ERYTHEMATOSUS [None]
